FAERS Safety Report 21627891 (Version 1)
Quarter: 2022Q4

REPORT INFORMATION
  Report Type: Spontaneous
  Country: US (occurrence: None)
  Receive Date: 20221121
  Receipt Date: 20221121
  Transmission Date: 20230113
  Serious: No
  Sender: FDA-Public Use
  Company Number: None

PATIENT
  Age: 73 Year
  Sex: Male

DRUGS (12)
  1. ABIRATERONE [Suspect]
     Active Substance: ABIRATERONE
     Indication: Prostate cancer
     Dosage: FREQUENCY : DAILY;?
     Route: 048
     Dates: start: 20220923
  2. PREDNISONE [Suspect]
     Active Substance: PREDNISONE
     Indication: Prostate cancer
  3. ASPIRIN [Concomitant]
     Active Substance: ASPIRIN
  4. ATORVASTATIN [Concomitant]
     Active Substance: ATORVASTATIN
  5. CALCIUM CARBONATE-VITAMIN D3 [Concomitant]
  6. DULOXETINE [Concomitant]
     Active Substance: DULOXETINE
  7. FAMOTIDINE [Concomitant]
     Active Substance: FAMOTIDINE
  8. LOSARTAN [Concomitant]
     Active Substance: LOSARTAN
  9. MYRBETRIQ [Concomitant]
     Active Substance: MIRABEGRON
  10. PREDNISONE [Concomitant]
     Active Substance: PREDNISONE
  11. TRAVOPROST [Concomitant]
     Active Substance: TRAVOPROST
  12. VYNDAMAX [Concomitant]
     Active Substance: TAFAMIDIS

REACTIONS (1)
  - Blood glucose fluctuation [None]
